FAERS Safety Report 10579395 (Version 3)
Quarter: 2015Q2

REPORT INFORMATION
  Report Type: Spontaneous
  Country: US (occurrence: US)
  Receive Date: 20141112
  Receipt Date: 20150430
  Transmission Date: 20150821
  Serious: Yes (Hospitalization, Other)
  Sender: FDA-Public Use
  Company Number: US-BAYER-2014-164955

PATIENT
  Age: 20 Year
  Sex: Female
  Weight: 68.27 kg

DRUGS (3)
  1. MIRENA [Suspect]
     Active Substance: LEVONORGESTREL
     Indication: CONTRACEPTION
     Dosage: 20 MCG/24HR, CONT
     Route: 015
     Dates: start: 20090128, end: 20121231
  2. MACROBID [Concomitant]
     Active Substance: NITROFURANTOIN\NITROFURANTOIN MONOHYDRATE
     Indication: URINARY TRACT INFECTION
  3. TOPAMAX [Concomitant]
     Active Substance: TOPIRAMATE
     Indication: MIGRAINE
     Dosage: UNK
     Dates: start: 2003

REACTIONS (8)
  - Drug ineffective [None]
  - Pregnancy with contraceptive device [None]
  - Injury [None]
  - Device dislocation [None]
  - Emotional distress [None]
  - Pelvic inflammatory disease [None]
  - Device issue [None]
  - Pain [None]

NARRATIVE: CASE EVENT DATE: 201001
